FAERS Safety Report 8336557 (Version 3)
Quarter: 2012Q4

REPORT INFORMATION
  Report Type: 
  Country: US (occurrence: US)
  Receive Date: 20120113
  Receipt Date: 20121029
  Transmission Date: 20130627
  Serious: No
  Sender: FDA-Public Use
  Company Number: US-BAYER-2012-004054

PATIENT
  Age: 30 Year
  Sex: Female
  Weight: 59.86 kg

DRUGS (6)
  1. MIRENA [Suspect]
     Indication: CONTRACEPTION
     Dosage: 20 mcg/24hr, CONT
     Route: 015
     Dates: start: 20110729, end: 20120109
  2. VARICELLA VACCINES [Concomitant]
  3. AMOXICILLIN [Concomitant]
  4. CEFDINIR [Concomitant]
  5. CONTRAST MEDIA [Concomitant]
  6. GILENYA [Concomitant]

REACTIONS (2)
  - Pregnancy with contraceptive device [Not Recovered/Not Resolved]
  - Device expulsion [Recovered/Resolved]
